FAERS Safety Report 24268980 (Version 2)
Quarter: 2024Q3

REPORT INFORMATION
  Report Type: Spontaneous
  Country: CA (occurrence: CA)
  Receive Date: 20240830
  Receipt Date: 20240917
  Transmission Date: 20241016
  Serious: Yes (Other)
  Sender: BAUSCH AND LOMB
  Company Number: CA-BAUSCH-BL-2024-012955

PATIENT
  Age: 26 Year
  Sex: Male

DRUGS (1)
  1. DIASTAT [Suspect]
     Active Substance: DIAZEPAM
     Indication: Seizure
     Route: 065
     Dates: start: 2007

REACTIONS (1)
  - Device malfunction [Unknown]
